FAERS Safety Report 11152802 (Version 1)
Quarter: 2015Q2

REPORT INFORMATION
  Report Type: Spontaneous
  Country: US (occurrence: US)
  Receive Date: 20150601
  Receipt Date: 20150601
  Transmission Date: 20150821
  Serious: Yes (Other)
  Sender: FDA-Public Use
  Company Number: US-BAYER-2015-272027

PATIENT
  Age: 79 Year
  Sex: Male

DRUGS (6)
  1. NICORANDIL [Concomitant]
     Active Substance: NICORANDIL
  2. CIPROFLOXACIN. [Suspect]
     Active Substance: CIPROFLOXACIN
     Indication: PNEUMONIA MYCOPLASMAL
     Dosage: UNK
  3. NIFEDIPINE. [Concomitant]
     Active Substance: NIFEDIPINE
  4. RIVAROXABAN [Concomitant]
     Active Substance: RIVAROXABAN
  5. ROSUVASTATIN [Concomitant]
     Active Substance: ROSUVASTATIN
  6. CANDESARTAN [Concomitant]
     Active Substance: CANDESARTAN

REACTIONS (4)
  - Uveitis [None]
  - Transaminases increased [None]
  - Product use issue [None]
  - Cardiac failure congestive [None]
